FAERS Safety Report 8153159-7 (Version None)
Quarter: 2012Q1

REPORT INFORMATION
  Report Type: 
  Country: None (occurrence: None)
  Receive Date: 20120215
  Receipt Date: 20120203
  Transmission Date: 20120608
  Serious: Yes (Life-Threatening, Hospitalization)
  Sender: FDA-Public Use
  Company Number: AMAG201200011

PATIENT
  Age: 59 Year
  Sex: Male
  Weight: 99.8 kg

DRUGS (17)
  1. PLAVIX [Concomitant]
  2. PRILOSEC [Concomitant]
  3. FERROUS SULFATE TAB [Concomitant]
  4. HYDRALAZINE HCL [Concomitant]
  5. LANTUS [Concomitant]
  6. BUMEX [Concomitant]
  7. FERAHEME [Suspect]
     Indication: IRON DEFICIENCY ANAEMIA
     Dosage: 1 ML, SINGLE (30 MG TEST DOSE), IV BOLUS
     Route: 040
     Dates: start: 20120111, end: 20120111
  8. FERAHEME [Suspect]
     Indication: RENAL FAILURE CHRONIC
     Dosage: 1 ML, SINGLE (30 MG TEST DOSE), IV BOLUS
     Route: 040
     Dates: start: 20120111, end: 20120111
  9. LASIX [Concomitant]
  10. ASPIRIN [Concomitant]
  11. GABAPENTIN [Concomitant]
  12. TRAMADOL HCL [Concomitant]
  13. CARVEDILOL [Concomitant]
  14. ERGOCALCIFEROL [Concomitant]
  15. ALDACTONE (POTASSIUM CANRENOATE) [Concomitant]
  16. SIMVASTATIN [Concomitant]
  17. NOVOLOG MIX (INSULIN ASPART, INSULIN ASPART PROTAMINE) [Concomitant]

REACTIONS (22)
  - PULSE ABSENT [None]
  - URINARY INCONTINENCE [None]
  - EXFOLIATIVE RASH [None]
  - LOSS OF CONSCIOUSNESS [None]
  - MALAISE [None]
  - MUCOSAL DRYNESS [None]
  - ANAPHYLACTIC REACTION [None]
  - RESPIRATORY ARREST [None]
  - CONTUSION [None]
  - BLOOD UREA INCREASED [None]
  - MUCOSAL DISCOLOURATION [None]
  - DERMATITIS EXFOLIATIVE [None]
  - BLOOD GLUCOSE INCREASED [None]
  - ANION GAP DECREASED [None]
  - CARDIAC ARREST [None]
  - FLUSHING [None]
  - NAUSEA [None]
  - HYPOXIA [None]
  - SCAB [None]
  - CHEST PAIN [None]
  - BLOOD CREATINE INCREASED [None]
  - ANXIETY [None]
